FAERS Safety Report 11906843 (Version 2)
Quarter: 2016Q1

REPORT INFORMATION
  Report Type: Spontaneous
  Country: US (occurrence: US)
  Receive Date: 20160111
  Receipt Date: 20160318
  Transmission Date: 20160526
  Serious: Yes (Death)
  Sender: FDA-Public Use
  Company Number: US-TAIHO ONCOLOGY INC-EU-2016-00030

PATIENT
  Age: 67 Year
  Sex: Male

DRUGS (2)
  1. LONSURF [Suspect]
     Active Substance: TIPIRACIL HYDROCHLORIDE\TRIFLURIDINE
     Indication: COLORECTAL CANCER METASTATIC
     Dosage: CYCLE 1
     Route: 048
     Dates: start: 20151126
  2. ALEVE [Concomitant]
     Active Substance: NAPROXEN SODIUM
     Dosage: NI

REACTIONS (2)
  - Disease progression [Fatal]
  - Jaundice [Unknown]

NARRATIVE: CASE EVENT DATE: 20151215
